FAERS Safety Report 7529368-4 (Version None)
Quarter: 2011Q2

REPORT INFORMATION
  Report Type: 
  Country: None (occurrence: None)
  Receive Date: 20110520
  Receipt Date: 20110121
  Transmission Date: 20111010
  Serious: No
  Sender: FDA-Public Use
  Company Number: 026491

PATIENT

DRUGS (1)
  1. LACOSAMIDE [Suspect]
     Indication: CONVULSION

REACTIONS (11)
  - GAIT DISTURBANCE [None]
  - ARTHRALGIA [None]
  - FATIGUE [None]
  - PAIN IN JAW [None]
  - DIZZINESS [None]
  - SOMNOLENCE [None]
  - VISUAL IMPAIRMENT [None]
  - HEADACHE [None]
  - TREMOR [None]
  - MOOD ALTERED [None]
  - DYSPNOEA [None]
